FAERS Safety Report 15677025 (Version 1)
Quarter: 2018Q4

REPORT INFORMATION
  Report Type: Spontaneous
  Country: US (occurrence: US)
  Receive Date: 20181130
  Receipt Date: 20181130
  Transmission Date: 20190205
  Serious: No
  Sender: FDA-Public Use
  Company Number: US-TEVA-2018-US-979526

PATIENT
  Age: 5 Year
  Sex: Male
  Weight: 23 kg

DRUGS (8)
  1. DEXAMETHASONE. [Concomitant]
     Active Substance: DEXAMETHASONE
     Indication: WHEEZING
     Dates: start: 20181118
  2. DEXAMETHASONE. [Concomitant]
     Active Substance: DEXAMETHASONE
     Indication: COUGH
  3. PROAIR HFA [Suspect]
     Active Substance: ALBUTEROL SULFATE
     Indication: COUGH
     Dosage: FOUR PUFFS EVERY FOUR TO SIX HOURS AS NEEDED
     Dates: start: 20181118, end: 20181119
  4. ZYRTEC [Concomitant]
     Active Substance: CETIRIZINE HYDROCHLORIDE
     Indication: UPPER-AIRWAY COUGH SYNDROME
  5. PROAIR HFA [Suspect]
     Active Substance: ALBUTEROL SULFATE
     Indication: BRONCHOSPASM
     Dates: start: 20181118, end: 20181119
  6. CESDINER [Concomitant]
     Indication: ANTIBIOTIC THERAPY
     Dates: start: 201811
  7. DELSYM [Concomitant]
     Active Substance: DEXTROMETHORPHAN
     Indication: COUGH
  8. PROAIR HFA [Suspect]
     Active Substance: ALBUTEROL SULFATE
     Indication: WHEEZING
     Dates: start: 20181118, end: 20181119

REACTIONS (6)
  - Product prescribing error [Unknown]
  - Cough [Unknown]
  - Bronchospasm paradoxical [Unknown]
  - Incorrect dose administered [Unknown]
  - Nasal congestion [Unknown]
  - Product dose omission [Unknown]

NARRATIVE: CASE EVENT DATE: 20181118
